FAERS Safety Report 8581962-8 (Version None)
Quarter: 2012Q3

REPORT INFORMATION
  Report Type: 
  Country: None (occurrence: None)
  Receive Date: 20120809
  Receipt Date: 20120731
  Transmission Date: 20120928
  Serious: Yes (Other)
  Sender: FDA-Public Use
  Company Number: US-ASTRAZENECA-2012SE42976

PATIENT
  Age: 21345 Day
  Sex: Female
  Weight: 68.9 kg

DRUGS (2)
  1. SYNTHROID [Concomitant]
     Indication: HYPOTHYROIDISM
  2. CRESTOR [Suspect]
     Route: 048

REACTIONS (6)
  - ERYTHEMA [None]
  - RASH [None]
  - OEDEMA MOUTH [None]
  - OEDEMA PERIPHERAL [None]
  - ANGIOEDEMA [None]
  - CHAPPED LIPS [None]
